FAERS Safety Report 4617206-9 (Version None)
Quarter: 2005Q1

REPORT INFORMATION
  Report Type: 
  Country: None (occurrence: None)
  Receive Date: 20050323
  Receipt Date: 20050316
  Transmission Date: 20050727
  Serious: Yes (Other)
  Sender: FDA-Public Use
  Company Number: PHFR2005GB01247

PATIENT
  Age: 40 Year
  Sex: Female

DRUGS (5)
  1. MELLERIL [Suspect]
     Dosage: UNK, UNK
     Route: 065
     Dates: start: 19880101
  2. NYTOL [Suspect]
     Dosage: UNK, UNK
     Route: 048
     Dates: start: 19880101
  3. STILNOCT [Suspect]
     Dosage: 10MG/DAY
     Route: 048
  4. BENYLIN [Suspect]
     Dosage: UNK, UNK
     Route: 048
     Dates: start: 19880101
  5. NIGHT NURSE /UNK/ [Suspect]
     Dosage: UNK, UNK
     Route: 048
     Dates: start: 19880101

REACTIONS (4)
  - ANXIETY [None]
  - ASTHENIA [None]
  - DEPRESSION [None]
  - FATIGUE [None]
